FAERS Safety Report 14199347 (Version 7)
Quarter: 2019Q2

REPORT INFORMATION
  Report Type: Report from Study
  Country: ES (occurrence: ES)
  Receive Date: 20171117
  Receipt Date: 20190416
  Transmission Date: 20190711
  Serious: Yes (Hospitalization)
  Sender: FDA-Public Use
  Company Number: ES-ROCHE-1883043

PATIENT
  Age: 36 Year
  Sex: Female
  Weight: 53 kg

DRUGS (9)
  1. PERTUZUMAB. [Suspect]
     Active Substance: PERTUZUMAB
     Dosage: MAINTAINANCE DOSE?DATE OF LAST DOSE: 11/MAR/2016 (420 MG)?WEEKS AT EXPOSURE: 42 WEEKS
     Route: 042
  2. TAMOXIFENE [Concomitant]
     Active Substance: TAMOXIFEN
     Indication: NEOPLASM MALIGNANT
     Route: 065
     Dates: start: 20150923
  3. DOCETAXEL. [Suspect]
     Active Substance: DOCETAXEL
     Indication: HER-2 POSITIVE BREAST CANCER
     Dosage: DATE OF LAST DOSE PRIOR TO PREGNANCY: 02/SEP/2015 (55 MG)?LAST DOSE DATE: 11/MAR/2016?WEEKS AT EXPOS
     Route: 042
     Dates: start: 20150521
  4. CLEXANE [Concomitant]
     Active Substance: ENOXAPARIN SODIUM
     Route: 065
     Dates: start: 20170103, end: 20170203
  5. TRASTUZUMAB EMTANSINE [Suspect]
     Active Substance: ADO-TRASTUZUMAB EMTANSINE
     Indication: HER-2 POSITIVE BREAST CANCER
     Dosage: DOSES: 160 MG AND 100 MG
     Route: 042
     Dates: start: 20160410, end: 20161103
  6. DECAPEPTIDE [Concomitant]
     Indication: NEOPLASM MALIGNANT
     Route: 065
     Dates: start: 20150923
  7. TRASTUZUMAB. [Suspect]
     Active Substance: TRASTUZUMAB
     Indication: HER-2 POSITIVE BREAST CANCER
     Dosage: DATE OF LAST DOSE: 11/MAR/2016?WEEKS AT EXPOSURE: 42 WEEKS?DOSE: 600 MG/ 5ML
     Route: 058
     Dates: start: 20150521
  8. PERTUZUMAB. [Suspect]
     Active Substance: PERTUZUMAB
     Indication: HER-2 POSITIVE BREAST CANCER
     Dosage: LOADING DOSE
     Route: 042
     Dates: start: 20150521
  9. TRASTUZUMAB EMTANSINE [Suspect]
     Active Substance: ADO-TRASTUZUMAB EMTANSINE
     Route: 042
     Dates: start: 201702, end: 201704

REACTIONS (3)
  - Maternal exposure during pregnancy [Unknown]
  - Premature separation of placenta [Unknown]
  - Pre-eclampsia [Unknown]

NARRATIVE: CASE EVENT DATE: 201607
